FAERS Safety Report 5566859-X (Version None)
Quarter: 2007Q4

REPORT INFORMATION
  Report Type: 
  Country: None (occurrence: None)
  Receive Date: 20071219
  Receipt Date: 20071210
  Transmission Date: 20080405
  Serious: Yes (Other)
  Sender: FDA-Public Use
  Company Number: US-KINGPHARMUSA00001-K200701594

PATIENT

DRUGS (5)
  1. ALTACE [Suspect]
     Indication: HYPERTENSION
     Dosage: 5-10 MG DAILY
     Route: 048
     Dates: start: 20030101
  2. LIPITOR [Concomitant]
     Dosage: 20 MG, QD
  3. NADOLOL [Concomitant]
     Indication: HYPERTENSION
     Dosage: 20 MG, QD
  4. VITAMINS [Concomitant]
  5. GLUCOSAMINE [Concomitant]
     Dosage: UNK, UNK

REACTIONS (5)
  - BLOOD PRESSURE INCREASED [None]
  - DRY MOUTH [None]
  - HYPERHIDROSIS [None]
  - SLEEP DISORDER [None]
  - TINNITUS [None]
